FAERS Safety Report 10459190 (Version 2)
Quarter: 2015Q2

REPORT INFORMATION
  Report Type: Spontaneous
  Country: SE (occurrence: SE)
  Receive Date: 20140917
  Receipt Date: 20150625
  Transmission Date: 20150821
  Serious: Yes (Other)
  Sender: FDA-Public Use
  Company Number: PHHY2014SE118365

PATIENT
  Sex: Female

DRUGS (1)
  1. ACLASTA [Suspect]
     Active Substance: ZOLEDRONIC ACID
     Indication: OSTEOPOROSIS
     Dosage: UNK
     Route: 042

REACTIONS (10)
  - Respiratory depression [Unknown]
  - Neuropathy peripheral [Unknown]
  - Balance disorder [Unknown]
  - Bone pain [Unknown]
  - Gait disturbance [Unknown]
  - Aphasia [Unknown]
  - Tremor [Unknown]
  - Obstructive airways disorder [Unknown]
  - Musculoskeletal stiffness [Unknown]
  - Fatigue [Unknown]
